FAERS Safety Report 26040330 (Version 3)
Quarter: 2025Q4

REPORT INFORMATION
  Report Type: Report from Study
  Country: CA (occurrence: CA)
  Receive Date: 20251113
  Receipt Date: 20251224
  Transmission Date: 20260118
  Serious: Yes (Other)
  Sender: ALEXION PHARMACEUTICALS
  Company Number: CA-AstraZeneca-CH-00988700A

PATIENT
  Age: 17 Year
  Sex: Female

DRUGS (6)
  1. SELUMETINIB [Suspect]
     Active Substance: SELUMETINIB
     Indication: Neurofibromatosis
     Dosage: 40 MILLIGRAM, BID
     Route: 061
     Dates: start: 20250606
  2. CABTREO [Concomitant]
     Active Substance: ADAPALENE\BENZOYL PEROXIDE\CLINDAMYCIN PHOSPHATE
     Dosage: UNK
     Route: 065
  3. DOXYCYCLINE [Concomitant]
     Active Substance: DOXYCYCLINE
     Dosage: UNK
     Route: 065
  4. DEXLANSOPRAZOLE [Concomitant]
     Active Substance: DEXLANSOPRAZOLE
     Dosage: UNK
     Route: 065
  5. VYVANSE [Concomitant]
     Active Substance: LISDEXAMFETAMINE DIMESYLATE
     Dosage: UNK
     Route: 065
  6. MELATONIN [Concomitant]
     Active Substance: MELATONIN
     Dosage: UNK
     Route: 065

REACTIONS (20)
  - Brain neoplasm benign [Unknown]
  - Syncope [Unknown]
  - Blood pressure decreased [Unknown]
  - Fall [Unknown]
  - Pain [Unknown]
  - Nausea [Unknown]
  - Loss of personal independence in daily activities [Unknown]
  - Headache [Unknown]
  - Feeling abnormal [Unknown]
  - Dizziness [Unknown]
  - Concussion [Unknown]
  - Acne [Unknown]
  - Polymenorrhoea [Unknown]
  - Hypoacusis [Unknown]
  - Asthenia [Unknown]
  - Temperature regulation disorder [Unknown]
  - Tremor [Unknown]
  - Heavy menstrual bleeding [Unknown]
  - Symptom recurrence [Not Recovered/Not Resolved]
  - Dermatitis [Not Recovered/Not Resolved]

NARRATIVE: CASE EVENT DATE: 20251029
